FAERS Safety Report 12056010 (Version 1)
Quarter: 2016Q1

REPORT INFORMATION
  Report Type: Spontaneous
  Country: US (occurrence: US)
  Receive Date: 20160209
  Receipt Date: 20160209
  Transmission Date: 20160526
  Serious: No
  Sender: FDA-Public Use
  Company Number: US-FERRINGPH-2014FE01692

PATIENT
  Age: 58 Year
  Sex: Male
  Weight: 90.72 kg

DRUGS (1)
  1. NOVAREL [Suspect]
     Active Substance: CHORIOGONADOTROPIN ALFA
     Indication: BLOOD TESTOSTERONE DECREASED
     Dosage: 1500 IU,,FORMULATION:INJECTION
     Route: 058
     Dates: start: 201405, end: 201406

REACTIONS (8)
  - Osteitis [Recovered/Resolved]
  - Peripheral swelling [Recovered/Resolved]
  - Arthralgia [Recovered/Resolved]
  - Localised oedema [Recovered/Resolved]
  - Smooth muscle antibody positive [Recovered/Resolved]
  - Gynaecomastia [Recovered/Resolved]
  - Face oedema [Recovered/Resolved]
  - Angiokeratoma [Recovered/Resolved]

NARRATIVE: CASE EVENT DATE: 201405
